FAERS Safety Report 6525954-9 (Version None)
Quarter: 2010Q1

REPORT INFORMATION
  Report Type: 
  Country: None (occurrence: None)
  Receive Date: 20100104
  Receipt Date: 20091228
  Transmission Date: 20100710
  Serious: Yes (Hospitalization)
  Sender: FDA-Public Use
  Company Number: PHHY2009NL58975

PATIENT
  Sex: Male

DRUGS (1)
  1. EXELON [Suspect]
     Dosage: 9.5 MG/24HRS
     Route: 062
     Dates: start: 20080910, end: 20091217

REACTIONS (2)
  - ARRHYTHMIA [None]
  - JAUNDICE [None]
